FAERS Safety Report 8570780 (Version 5)
Quarter: 2014Q2

REPORT INFORMATION
  Report Type: Spontaneous
  Country: US (occurrence: US)
  Receive Date: 20120521
  Receipt Date: 20140516
  Transmission Date: 20141212
  Serious: Yes (Death, Hospitalization)
  Sender: FDA-Public Use
  Company Number: US-B.I. PHARMACEUTICALS,INC./RIDGEFIELD-2012-BP-11050BP

PATIENT
  Sex: Female
  Weight: 76.2 kg

DRUGS (10)
  1. PRADAXA [Suspect]
     Indication: ATRIAL FIBRILLATION
     Dosage: 300 MG
     Route: 065
     Dates: start: 20110124, end: 20111102
  2. PRADAXA [Suspect]
     Indication: ANTICOAGULANT THERAPY
  3. METFORMIN [Concomitant]
     Dosage: 1000 MG
     Route: 048
     Dates: start: 200402, end: 20111116
  4. MULTAQ [Concomitant]
     Route: 048
  5. KEFLEX [Concomitant]
     Dosage: 2000 MG
     Route: 048
  6. CELEXA [Concomitant]
     Route: 065
     Dates: start: 201102, end: 201110
  7. ZANTAC [Concomitant]
     Route: 048
  8. HYDROCODONE/APAP [Concomitant]
     Route: 065
  9. CITALOPRAM [Concomitant]
     Route: 048
     Dates: start: 201003, end: 20111116
  10. VOLTAREN [Concomitant]
     Route: 048

REACTIONS (5)
  - Myocardial infarction [Fatal]
  - Pulmonary embolism [Fatal]
  - Rectal haemorrhage [Unknown]
  - Anaemia [Unknown]
  - Genital abscess [Unknown]
